FAERS Safety Report 18878584 (Version 1)
Quarter: 2021Q1

REPORT INFORMATION
  Report Type: Spontaneous
  Country: US (occurrence: US)
  Receive Date: 20210211
  Receipt Date: 20210211
  Transmission Date: 20210420
  Serious: Yes (Life-Threatening, Hospitalization)
  Sender: FDA-Public Use
  Company Number: None

PATIENT
  Age: 91 Year
  Sex: Female
  Weight: 69 kg

DRUGS (1)
  1. REGENERON (CASIRIVIMAB AND IMDEVIMAB) [Suspect]
     Active Substance: CASIRIVIMAB\IMDEVIMAB
     Indication: COVID-19
     Dosage: ?          OTHER FREQUENCY:ONCE;?
     Route: 042

REACTIONS (11)
  - Nausea [None]
  - Oxygen saturation decreased [None]
  - Acute respiratory failure [None]
  - Hypotension [None]
  - Hypercapnia [None]
  - Pneumonia [None]
  - Hypoxia [None]
  - Coma scale abnormal [None]
  - Dyspnoea [None]
  - Mental status changes [None]
  - Shock [None]

NARRATIVE: CASE EVENT DATE: 20210210
